FAERS Safety Report 11893356 (Version 1)
Quarter: 2016Q1

REPORT INFORMATION
  Report Type: Spontaneous
  Country: FR (occurrence: FR)
  Receive Date: 20160106
  Receipt Date: 20160106
  Transmission Date: 20160526
  Serious: Yes (Hospitalization)
  Sender: FDA-Public Use
  Company Number: FR-ROCHE-1686697

PATIENT
  Age: 80 Year
  Sex: Female

DRUGS (23)
  1. ZELBORAF [Suspect]
     Active Substance: VEMURAFENIB
     Dosage: 75% OF RECOMMENDED DOSE
     Route: 048
     Dates: start: 20150528
  2. ZELBORAF [Suspect]
     Active Substance: VEMURAFENIB
     Dosage: 50% OF RECOMMENDED DOSE
     Route: 048
     Dates: start: 20150812, end: 20150911
  3. COBIMETINIB [Suspect]
     Active Substance: COBIMETINIB
     Dosage: 75% RECOMMENDED DOSE
     Route: 048
     Dates: start: 20150812, end: 20150911
  4. BISOPROLOL [Concomitant]
     Active Substance: BISOPROLOL
  5. FLUOXETINE [Concomitant]
     Active Substance: FLUOXETINE HYDROCHLORIDE
  6. MIANSERINE [Concomitant]
     Active Substance: MIANSERIN HYDROCHLORIDE
  7. LITHIUM ACETATE [Concomitant]
     Active Substance: LITHIUM ACETATE
  8. ZELBORAF [Suspect]
     Active Substance: VEMURAFENIB
     Dosage: 100% OF RECOMENDED DOSE
     Route: 048
     Dates: start: 20150511, end: 20150513
  9. COBIMETINIB [Suspect]
     Active Substance: COBIMETINIB
     Indication: CONJUNCTIVAL MELANOMA
     Dosage: 21 OUT OF 28 DAYS
     Route: 048
     Dates: start: 20150430, end: 20150513
  10. COBIMETINIB [Suspect]
     Active Substance: COBIMETINIB
     Route: 048
     Dates: start: 20150604
  11. TANAKAN [Concomitant]
     Active Substance: GINKGO
  12. ACTONEL [Concomitant]
     Active Substance: RISEDRONATE SODIUM
  13. COBIMETINIB [Suspect]
     Active Substance: COBIMETINIB
     Dosage: 100% OF RECOMMENDED DOSE
     Route: 048
     Dates: start: 20150612
  14. PENTOFLUX LP [Concomitant]
  15. ZELBORAF [Suspect]
     Active Substance: VEMURAFENIB
     Indication: CONJUNCTIVAL MELANOMA
     Route: 048
     Dates: start: 20150401, end: 201508
  16. COBIMETINIB [Suspect]
     Active Substance: COBIMETINIB
     Dosage: 1 TAB PER DAY (21 OUT OF 28 DAYS)
     Route: 048
     Dates: start: 20150528
  17. CRESTOR [Concomitant]
     Active Substance: ROSUVASTATIN CALCIUM
  18. ZELBORAF [Suspect]
     Active Substance: VEMURAFENIB
     Dosage: 50% OF RECOMMENDED DOSE
     Route: 048
     Dates: start: 20150422
  19. EXFORGE [Concomitant]
     Active Substance: AMLODIPINE BESYLATE\VALSARTAN
  20. CETORNAN [Concomitant]
  21. FLAMMAZINE [Concomitant]
     Active Substance: SILVER SULFADIAZINE
  22. ZELBORAF [Suspect]
     Active Substance: VEMURAFENIB
     Dosage: 75% OF RECOMMENDED DOSE
     Route: 048
     Dates: start: 20150430
  23. HEMI-DAONIL [Concomitant]
     Active Substance: GLYBURIDE

REACTIONS (2)
  - Melaena [Recovered/Resolved]
  - Duodenal ulcer [Recovered/Resolved]

NARRATIVE: CASE EVENT DATE: 20150616
